FAERS Safety Report 11704762 (Version 4)
Quarter: 2015Q4

REPORT INFORMATION
  Report Type: Spontaneous
  Country: CN (occurrence: CN)
  Receive Date: 20151106
  Receipt Date: 20151217
  Transmission Date: 20160304
  Serious: Yes (Other)
  Sender: FDA-Public Use
  Company Number: CN-GLAXOSMITHKLINE-CN2015GSK157041

PATIENT
  Age: 12 Year
  Sex: Female

DRUGS (2)
  1. BACTROBAN [Suspect]
     Active Substance: MUPIROCIN\MUPIROCIN CALCIUM
     Indication: WOUND
     Dosage: UNK
     Route: 061
     Dates: start: 20151101, end: 20151104
  2. LODOPHOR [Suspect]
     Active Substance: POVIDONE-IODINE
     Indication: WOUND
     Dosage: UNK
     Route: 061
     Dates: start: 20151101, end: 20151104

REACTIONS (5)
  - Wound secretion [Recovered/Resolved]
  - Skin abrasion [Recovered/Resolved]
  - Scab [Recovered/Resolved]
  - Wound infection [Recovered/Resolved]
  - Application site reaction [Recovered/Resolved]

NARRATIVE: CASE EVENT DATE: 201511
